FAERS Safety Report 5662620-6 (Version None)
Quarter: 2008Q1

REPORT INFORMATION
  Report Type: 
  Country: None (occurrence: None)
  Receive Date: 20080313
  Receipt Date: 20080307
  Transmission Date: 20080703
  Serious: Yes (Life-Threatening, Hospitalization)
  Sender: FDA-Public Use
  Company Number: IT-BAYER-200814179GPV

PATIENT
  Age: 32 Year
  Sex: Male

DRUGS (1)
  1. ASPIRINA C EFFERVESCENTE (ACETYLSALICYLIC ACID + ASCORBIC ACID) [Suspect]
     Indication: HEADACHE
     Dosage: TOTAL DAILY DOSE: 400 MG  UNIT DOSE: 400 MG
     Route: 048
     Dates: start: 20080212, end: 20080212

REACTIONS (3)
  - GENERAL PHYSICAL HEALTH DETERIORATION [None]
  - LOSS OF CONSCIOUSNESS [None]
  - PEMPHIGUS [None]
